FAERS Safety Report 23264647 (Version 1)
Quarter: 2023Q4

REPORT INFORMATION
  Report Type: Report from Study
  Country: CA (occurrence: CA)
  Receive Date: 20231205
  Receipt Date: 20231205
  Transmission Date: 20240110
  Serious: Yes (Other)
  Sender: FDA-Public Use
  Company Number: CA-LUNDBECK-DKLU3070982

PATIENT
  Age: 36 Year
  Sex: Male

DRUGS (2)
  1. VYEPTI [Suspect]
     Active Substance: EPTINEZUMAB-JJMR
     Indication: Migraine
     Route: 041
     Dates: start: 20230612
  2. VYEPTI [Suspect]
     Active Substance: EPTINEZUMAB-JJMR
     Route: 041
     Dates: start: 20230906

REACTIONS (7)
  - Heart rate increased [Unknown]
  - Vomiting [Recovered/Resolved]
  - Pyrexia [Recovered/Resolved]
  - Tremor [Recovered/Resolved]
  - Palpitations [Recovered/Resolved]
  - Dizziness [Recovered/Resolved]
  - Blood phosphorus decreased [Unknown]

NARRATIVE: CASE EVENT DATE: 20230910
